FAERS Safety Report 12757573 (Version 1)
Quarter: 2016Q3

REPORT INFORMATION
  Report Type: Spontaneous
  Country: NG (occurrence: NG)
  Receive Date: 20160919
  Receipt Date: 20160919
  Transmission Date: 20161109
  Serious: Yes (Death)
  Sender: FDA-Public Use
  Company Number: NG-ROCHE-1831479

PATIENT
  Age: 51 Year
  Sex: Female
  Weight: 68 kg

DRUGS (3)
  1. CISPLATIN. [Suspect]
     Active Substance: CISPLATIN
     Indication: ENDOMETRIAL CANCER METASTATIC
     Dosage: FOR 3 CYCLES
     Route: 065
     Dates: start: 201607
  2. EPIRUBICIN [Suspect]
     Active Substance: EPIRUBICIN
     Indication: ENDOMETRIAL CANCER METASTATIC
     Dosage: FOR 3 CYCLES
     Route: 065
     Dates: start: 201607
  3. AVASTIN [Suspect]
     Active Substance: BEVACIZUMAB
     Indication: ENDOMETRIAL CANCER METASTATIC
     Dosage: TREATMENT STARTED JULY 2016
     Route: 041
     Dates: start: 201607

REACTIONS (1)
  - Death [Fatal]
